FAERS Safety Report 6804317-2 (Version None)
Quarter: 2010Q2

REPORT INFORMATION
  Report Type: 
  Country: None (occurrence: None)
  Receive Date: 20100628
  Receipt Date: 20070412
  Transmission Date: 20101027
  Serious: Yes (Other)
  Sender: FDA-Public Use
  Company Number: US-PFIZER INC-2007014531

PATIENT
  Sex: Female

DRUGS (4)
  1. GEODON [Suspect]
     Indication: DEPRESSION
     Dates: start: 20070201
  2. LOVASTATIN [Concomitant]
  3. ATENOLOL [Concomitant]
  4. LISINOPRIL [Concomitant]

REACTIONS (4)
  - HYPERTENSION [None]
  - INSOMNIA [None]
  - POLLAKIURIA [None]
  - SOMNOLENCE [None]
